FAERS Safety Report 12462527 (Version 4)
Quarter: 2016Q3

REPORT INFORMATION
  Report Type: Spontaneous
  Country: GB (occurrence: GB)
  Receive Date: 20160614
  Receipt Date: 20160706
  Transmission Date: 20161109
  Serious: Yes (Other)
  Sender: FDA-Public Use
  Company Number: GB-ROCHE-1773068

PATIENT
  Age: 57 Year
  Sex: Female

DRUGS (7)
  1. DEXAMETHASONE. [Concomitant]
     Active Substance: DEXAMETHASONE
  2. HERCEPTIN [Suspect]
     Active Substance: TRASTUZUMAB
     Indication: PRODUCT USED FOR UNKNOWN INDICATION
     Route: 058
     Dates: start: 20160531
  3. BENZYDAMINE [Concomitant]
     Active Substance: BENZYDAMINE
  4. NEULASTA [Suspect]
     Active Substance: PEGFILGRASTIM
     Indication: PRODUCT USED FOR UNKNOWN INDICATION
     Dosage: LAST ADMINISTERED 01/JUN/2016
     Route: 058
  5. APREPITANT. [Concomitant]
     Active Substance: APREPITANT
  6. DOCETAXEL. [Concomitant]
     Active Substance: DOCETAXEL
  7. ONDANSETRON [Concomitant]
     Active Substance: ONDANSETRON

REACTIONS (11)
  - Fatigue [Recovered/Resolved]
  - Vein disorder [Unknown]
  - Arthralgia [Recovered/Resolved]
  - Myalgia [Recovered/Resolved]
  - Dysgeusia [Unknown]
  - Vein discolouration [Recovering/Resolving]
  - Alopecia [Unknown]
  - Oral pain [Unknown]
  - Chromaturia [Unknown]
  - Asthenia [Recovering/Resolving]
  - Nausea [Unknown]

NARRATIVE: CASE EVENT DATE: 20160602
